FAERS Safety Report 6543525-5 (Version None)
Quarter: 2010Q1

REPORT INFORMATION
  Report Type: 
  Country: None (occurrence: None)
  Receive Date: 20100120
  Receipt Date: 20100118
  Transmission Date: 20100710
  Serious: Yes (Other)
  Sender: FDA-Public Use
  Company Number: B0627297A

PATIENT
  Sex: Male

DRUGS (3)
  1. AVODART [Suspect]
     Indication: PROSTATIC ADENOMA
     Dosage: .5MG PER DAY
     Route: 065
     Dates: start: 20091201, end: 20091201
  2. TAMSULOSIN HCL [Concomitant]
     Indication: PROSTATIC ADENOMA
     Dosage: .4MG PER DAY
     Dates: start: 20080101
  3. AMIODARONE HCL [Concomitant]
     Indication: ATRIAL FIBRILLATION
     Dosage: 200MG PER DAY
     Dates: start: 20091125

REACTIONS (2)
  - ABDOMINAL PAIN [None]
  - URTICARIA [None]
